FAERS Safety Report 16868302 (Version 1)
Quarter: 2019Q3

REPORT INFORMATION
  Report Type: Report from Study
  Country: CA (occurrence: CA)
  Receive Date: 20190930
  Receipt Date: 20190930
  Transmission Date: 20191005
  Serious: Yes (Hospitalization, Other)
  Sender: FDA-Public Use
  Company Number: CA-GLAXOSMITHKLINE-CA2019AMR172478

PATIENT
  Sex: Male

DRUGS (5)
  1. FLOVENT DISKUS [Suspect]
     Active Substance: FLUTICASONE PROPIONATE
     Indication: ASTHMA
     Dosage: UNK
  2. SPIRIVA [Suspect]
     Active Substance: TIOTROPIUM BROMIDE MONOHYDRATE
     Indication: ASTHMA
     Dosage: 2.5 ?G, UNK; 2 INHALATION DAILY
  3. SALBUTAMOL SULPHATE [Suspect]
     Active Substance: ALBUTEROL SULFATE
     Indication: PRODUCT USED FOR UNKNOWN INDICATION
     Dosage: UNK
  4. SINGULAIR [Suspect]
     Active Substance: MONTELUKAST SODIUM
     Indication: ASTHMA
     Dosage: 2 DF, UNK; 2 INHALATION DAILY
  5. SYMBICORT [Suspect]
     Active Substance: BUDESONIDE\FORMOTEROL FUMARATE DIHYDRATE
     Indication: ASTHMA
     Dosage: 200 ?G, TID; 2 INHALTION 3 TIMES A DAY

REACTIONS (12)
  - Bronchiectasis [Unknown]
  - Therapeutic product effect incomplete [Unknown]
  - Atelectasis [Unknown]
  - Diabetes mellitus [Unknown]
  - Blood count abnormal [Unknown]
  - Asthma [Unknown]
  - Eosinophilia [Unknown]
  - Influenza [Unknown]
  - Dysphonia [Unknown]
  - Pneumonia [Unknown]
  - Hypertension [Unknown]
  - Loss of personal independence in daily activities [Unknown]
